FAERS Safety Report 6303598-1 (Version None)
Quarter: 2009Q3

REPORT INFORMATION
  Report Type: 
  Country: None (occurrence: None)
  Receive Date: 20090807
  Receipt Date: 20090807
  Transmission Date: 20100115
  Serious: No
  Sender: FDA-Public Use
  Company Number: None

PATIENT
  Sex: Female
  Weight: 77.1115 kg

DRUGS (2)
  1. ZYCAM NASAL GEL [Suspect]
     Indication: NASOPHARYNGITIS
     Dosage: 1 SPRAY 1-2 TIMES A DAY NASAL
     Route: 045
     Dates: start: 20081201, end: 20090228
  2. ZYCAM NASAL GEL [Suspect]
     Indication: PROPHYLAXIS
     Dosage: 1 SPRAY 1-2 TIMES A DAY NASAL
     Route: 045
     Dates: start: 20081201, end: 20090228

REACTIONS (1)
  - ANOSMIA [None]
